FAERS Safety Report 4330284-X (Version None)
Quarter: 2004Q2

REPORT INFORMATION
  Report Type: 
  Country: None (occurrence: None)
  Receive Date: 20040401
  Receipt Date: 20040401
  Transmission Date: 20050107
  Serious: Yes (Other)
  Sender: FDA-Public Use
  Company Number: None

PATIENT
  Age: 35 Year
  Sex: Male
  Weight: 86.1834 kg

DRUGS (1)
  1. ZOLOFT [Suspect]
     Dosage: 1 PILL

REACTIONS (6)
  - ABNORMAL BEHAVIOUR [None]
  - AMNESIA [None]
  - DISTURBANCE IN ATTENTION [None]
  - INSOMNIA [None]
  - MANIA [None]
  - SELF ESTEEM INFLATED [None]
